FAERS Safety Report 8133761-9 (Version None)
Quarter: 2012Q1

REPORT INFORMATION
  Report Type: 
  Country: None (occurrence: None)
  Receive Date: 20120213
  Receipt Date: 20120213
  Transmission Date: 20120608
  Serious: Yes (Death)
  Sender: FDA-Public Use
  Company Number: None

PATIENT
  Sex: Male
  Weight: 86.5 kg

DRUGS (1)
  1. ZYPREXA [Suspect]
     Indication: SLEEP DISORDER
     Dosage: 10MG
     Route: 048
     Dates: start: 20111002, end: 20111002

REACTIONS (2)
  - UNRESPONSIVE TO STIMULI [None]
  - RESPIRATORY TRACT INFECTION [None]
